FAERS Safety Report 24972689 (Version 2)
Quarter: 2025Q1

REPORT INFORMATION
  Report Type: Spontaneous
  Country: ES (occurrence: ES)
  Receive Date: 20250215
  Receipt Date: 20250228
  Transmission Date: 20250409
  Serious: Yes (Other)
  Sender: CELLTRION
  Company Number: ES-ROCHE-10000061679

PATIENT

DRUGS (10)
  1. RITUXIMAB [Suspect]
     Active Substance: RITUXIMAB
     Indication: Systemic lupus erythematosus
     Route: 042
  2. RITUXIMAB [Suspect]
     Active Substance: RITUXIMAB
     Indication: Autoimmune disorder
  3. RITUXIMAB [Suspect]
     Active Substance: RITUXIMAB
     Indication: Autoimmune anaemia
  4. RITUXIMAB [Suspect]
     Active Substance: RITUXIMAB
     Indication: Thrombocytopenia
  5. RITUXIMAB [Suspect]
     Active Substance: RITUXIMAB
     Indication: Immune thrombocytopenia
  6. PREDNISONE [Concomitant]
     Active Substance: PREDNISONE
  7. CELLCEPT [Concomitant]
     Active Substance: MYCOPHENOLATE MOFETIL
  8. METHOTREXATE [Concomitant]
     Active Substance: METHOTREXATE
  9. AZATHIOPRINE [Concomitant]
     Active Substance: AZATHIOPRINE
  10. ACENOCOUMAROL [Concomitant]
     Active Substance: ACENOCOUMAROL

REACTIONS (2)
  - Cystoid macular oedema [Recovered/Resolved]
  - Off label use [Unknown]
